FAERS Safety Report 20335228 (Version 6)
Quarter: 2022Q3

REPORT INFORMATION
  Report Type: Other
  Country: KR (occurrence: None)
  Receive Date: 20220114
  Receipt Date: 20220825
  Transmission Date: 20221026
  Serious: Yes (Other)
  Sender: FDA-Public Use
  Company Number: KR-ROCHE-2998143

PATIENT
  Age: 52 Year
  Sex: Male
  Weight: 90.9 kg

DRUGS (43)
  1. ATEZOLIZUMAB [Suspect]
     Active Substance: ATEZOLIZUMAB
     Indication: Hepatocellular carcinoma
     Dosage: SUBSEQUENT DOSES ON 27/JAN/2022, 17/FEB/2022, 10/MAR/2022, 31/MAR/2022, 21/APR/2022 AND 16/MAY/2022.
     Route: 042
     Dates: start: 20211207
  2. ATEZOLIZUMAB [Suspect]
     Active Substance: ATEZOLIZUMAB
     Route: 042
     Dates: start: 20220127
  3. ATEZOLIZUMAB [Suspect]
     Active Substance: ATEZOLIZUMAB
     Route: 042
     Dates: start: 20220217
  4. ATEZOLIZUMAB [Suspect]
     Active Substance: ATEZOLIZUMAB
     Route: 042
     Dates: start: 20220310
  5. ATEZOLIZUMAB [Suspect]
     Active Substance: ATEZOLIZUMAB
     Route: 042
     Dates: start: 20220331
  6. ATEZOLIZUMAB [Suspect]
     Active Substance: ATEZOLIZUMAB
     Route: 042
     Dates: start: 20220421
  7. ATEZOLIZUMAB [Suspect]
     Active Substance: ATEZOLIZUMAB
     Route: 042
     Dates: start: 20220516
  8. BEVACIZUMAB [Suspect]
     Active Substance: BEVACIZUMAB
     Indication: Hepatocellular carcinoma
     Dosage: SUBSEQUENT DOSES ON 27/JAN/2022, 17/FEB/2022, 10/MAR/2022 , 31/MAR/2022, 21/APR/2022 AND 16/MAY/2022
     Route: 042
     Dates: start: 20211207
  9. BEVACIZUMAB [Suspect]
     Active Substance: BEVACIZUMAB
     Route: 042
     Dates: start: 20220127
  10. BEVACIZUMAB [Suspect]
     Active Substance: BEVACIZUMAB
     Route: 042
     Dates: start: 20220217
  11. BEVACIZUMAB [Suspect]
     Active Substance: BEVACIZUMAB
     Route: 042
     Dates: start: 20220310
  12. BEVACIZUMAB [Suspect]
     Active Substance: BEVACIZUMAB
     Route: 042
     Dates: start: 20220331
  13. BEVACIZUMAB [Suspect]
     Active Substance: BEVACIZUMAB
     Route: 042
     Dates: start: 20220421
  14. BEVACIZUMAB [Suspect]
     Active Substance: BEVACIZUMAB
     Route: 042
     Dates: start: 20220516
  15. FURIX (SOUTH KOREA) [Concomitant]
     Indication: Ascites
     Dates: start: 20211201
  16. ALDACTONE [Concomitant]
     Active Substance: SPIRONOLACTONE
     Indication: Ascites
     Dates: start: 20211201
  17. ALDACTONE [Concomitant]
     Active Substance: SPIRONOLACTONE
     Dates: start: 20211220
  18. BARACLUDE [Concomitant]
     Active Substance: ENTECAVIR
     Indication: Hepatitis B
     Dates: start: 2021
  19. ASPIRIN [Concomitant]
     Active Substance: ASPIRIN
     Indication: Myocardial infarction
  20. NICORANDIL [Concomitant]
     Active Substance: NICORANDIL
     Indication: Myocardial infarction
     Dates: end: 20211220
  21. CARVEDILOL [Concomitant]
     Active Substance: CARVEDILOL
     Indication: Myocardial infarction
     Dates: end: 20211220
  22. LODIEN [Concomitant]
     Indication: Myocardial infarction
  23. CANTABELL [Concomitant]
     Indication: Hypertension
     Dosage: 16/5MG
  24. EZETIMIBE\ROSUVASTATIN [Concomitant]
     Active Substance: EZETIMIBE\ROSUVASTATIN
     Indication: Hyperlipidaemia
     Dosage: 10/5M
  25. TERIPIN [Concomitant]
     Indication: Melaena
     Dosage: 1MG/V
     Dates: start: 20211214, end: 20211216
  26. PANTOPRAZOLE SODIUM [Concomitant]
     Active Substance: PANTOPRAZOLE SODIUM
     Indication: Varices oesophageal
     Dates: start: 20211214, end: 20211216
  27. LASIX [Concomitant]
     Active Substance: FUROSEMIDE
     Indication: Ascites
     Dates: start: 20211215, end: 20211215
  28. MACHKHAN [Concomitant]
     Indication: Hypertension
     Dosage: 16/5MG
     Dates: start: 20211216, end: 20211220
  29. NEXIUM [Concomitant]
     Active Substance: ESOMEPRAZOLE MAGNESIUM
     Indication: Gastric ulcer
     Dates: start: 20211216
  30. TRAMADOL HYDROCHLORIDE [Concomitant]
     Active Substance: TRAMADOL HYDROCHLORIDE
     Indication: Cancer pain
     Dosage: 50MG/ML
     Dates: start: 20211219, end: 20211219
  31. TRAMADOL HYDROCHLORIDE [Concomitant]
     Active Substance: TRAMADOL HYDROCHLORIDE
     Dosage: 50MG/ML
     Dates: start: 20220323, end: 20220324
  32. ACETAMINOPHEN\TRAMADOL [Concomitant]
     Active Substance: ACETAMINOPHEN\TRAMADOL
     Indication: Cancer pain
     Dates: start: 20211219, end: 20211219
  33. ALDACTONE [Concomitant]
     Active Substance: SPIRONOLACTONE
     Dates: start: 20211220
  34. MAGNESIUM HYDROXIDE [Concomitant]
     Active Substance: MAGNESIUM HYDROXIDE
     Indication: Gastric ulcer
     Dates: start: 20211221, end: 20211221
  35. URSODIOL [Concomitant]
     Active Substance: URSODIOL
     Dates: start: 20220125
  36. PENNEL (SOUTH KOREA) [Concomitant]
     Indication: Hepatitis
     Dates: start: 20220125
  37. PENIRAMIN [Concomitant]
     Indication: Urticaria
     Dates: start: 20220127
  38. POLYETHYLENE GLYCOL 4000 [Concomitant]
     Active Substance: POLYETHYLENE GLYCOL 4000
     Indication: Constipation
     Dates: start: 20220211
  39. AMLODIPINE [Concomitant]
     Active Substance: AMLODIPINE BESYLATE
     Indication: Myocardial infarction
     Dates: start: 20211216, end: 20211220
  40. ABSTRAL [Concomitant]
     Active Substance: FENTANYL CITRATE
     Indication: Cancer pain
     Dates: start: 20211219
  41. DULACKHAN EASY [Concomitant]
     Indication: Constipation
     Dates: start: 20211221
  42. METOCLOPRAMIDE HYDROCHLORIDE [Concomitant]
     Active Substance: METOCLOPRAMIDE HYDROCHLORIDE
     Indication: Nausea
     Dates: start: 20220324, end: 20220325
  43. METOCLOPRAMIDE HYDROCHLORIDE [Concomitant]
     Active Substance: METOCLOPRAMIDE HYDROCHLORIDE
     Dates: start: 20220325, end: 20220331

REACTIONS (7)
  - Melaena [Recovered/Resolved]
  - Gastric ulcer [Recovering/Resolving]
  - Hypoalbuminaemia [Recovering/Resolving]
  - Constipation [Recovering/Resolving]
  - Urticaria [Recovered/Resolved]
  - Nausea [Recovered/Resolved]
  - Epistaxis [Recovered/Resolved]

NARRATIVE: CASE EVENT DATE: 20211213
